FAERS Safety Report 6209720-X (Version None)
Quarter: 2009Q2

REPORT INFORMATION
  Report Type: 
  Country: None (occurrence: None)
  Receive Date: 20090601
  Receipt Date: 20090521
  Transmission Date: 20091009
  Serious: Yes (Hospitalization, Other)
  Sender: FDA-Public Use
  Company Number: US-JNJFOC-20090401024

PATIENT
  Sex: Male
  Weight: 108.86 kg

DRUGS (2)
  1. REMICADE [Suspect]
     Dosage: SECOND INFUSION
     Route: 042
  2. REMICADE [Suspect]
     Indication: PSORIATIC ARTHROPATHY
     Route: 042

REACTIONS (12)
  - ARTHRALGIA [None]
  - BLOOD PRESSURE INCREASED [None]
  - CHILLS [None]
  - EXERCISE TOLERANCE DECREASED [None]
  - INFUSION RELATED REACTION [None]
  - MIGRAINE [None]
  - NAUSEA [None]
  - PAIN [None]
  - PALPITATIONS [None]
  - QUALITY OF LIFE DECREASED [None]
  - TREMOR [None]
  - TRISMUS [None]
